FAERS Safety Report 18247486 (Version 1)
Quarter: 2020Q3

REPORT INFORMATION
  Report Type: Other
  Country: RU (occurrence: RU)
  Receive Date: 20200909
  Receipt Date: 20200909
  Transmission Date: 20201103
  Serious: Yes (Other)
  Sender: FDA-Public Use
  Company Number: RU-VALIDUS PHARMACEUTICALS LLC-RU-2020VAL000738

PATIENT

DRUGS (2)
  1. TRENTAL [Suspect]
     Active Substance: PENTOXIFYLLINE
     Indication: HAEMORRHAGIC VASCULITIS
  2. TRENTAL [Suspect]
     Active Substance: PENTOXIFYLLINE
     Indication: HENOCH-SCHONLEIN PURPURA
     Dosage: 20 MG, QD
     Route: 041
     Dates: start: 20000204, end: 20000208

REACTIONS (1)
  - Myalgia [Recovered/Resolved]

NARRATIVE: CASE EVENT DATE: 20000204
